FAERS Safety Report 21346389 (Version 1)
Quarter: 2022Q3

REPORT INFORMATION
  Report Type: Report from Study
  Country: US (occurrence: None)
  Receive Date: 20220917
  Receipt Date: 20220917
  Transmission Date: 20221027
  Serious: Yes (Hospitalization)
  Sender: FDA-Public Use
  Company Number: 2022A316029

PATIENT
  Sex: Male

DRUGS (2)
  1. LYNPARZA [Suspect]
     Active Substance: OLAPARIB
     Indication: Prostate cancer
     Route: 048
     Dates: start: 20220809
  2. LYNPARZA [Suspect]
     Active Substance: OLAPARIB
     Indication: Metastasis
     Route: 048
     Dates: start: 20220809

REACTIONS (1)
  - Heart rate increased [Unknown]
